FAERS Safety Report 10993371 (Version 3)
Quarter: 2015Q4

REPORT INFORMATION
  Report Type: Spontaneous
  Country: US (occurrence: US)
  Receive Date: 20150407
  Receipt Date: 20151023
  Transmission Date: 20160304
  Serious: Yes (Hospitalization, Other)
  Sender: FDA-Public Use
  Company Number: US-JNJFOC-20150320181

PATIENT
  Age: 50 Year
  Sex: Female
  Weight: 61.24 kg

DRUGS (9)
  1. ACETAMINOPHEN. [Suspect]
     Active Substance: ACETAMINOPHEN
     Indication: HEADACHE
     Dosage: 1 TO 2 DOSES PER INCIDENT
     Route: 065
  2. ACETAMINOPHEN. [Suspect]
     Active Substance: ACETAMINOPHEN
     Indication: MYALGIA
     Dosage: 1 TO 2 DOSES PER INCIDENT
     Route: 065
  3. MARIJUANA [Concomitant]
     Active Substance: CANNABIS SATIVA SUBSP. INDICA TOP
     Indication: PRODUCT USED FOR UNKNOWN INDICATION
     Route: 065
  4. ALCOHOL. [Suspect]
     Active Substance: ALCOHOL
     Indication: PRODUCT USED FOR UNKNOWN INDICATION
     Route: 065
  5. TYLENOL [Suspect]
     Active Substance: ACETAMINOPHEN
     Indication: MYALGIA
     Dosage: 1 TO 2 DOSES PER INCIDENT. EVERY 3 TO 4 HOURS ALSO REPORTED AS FOUR OR FIVE PER HOUR.
     Route: 048
  6. TYLENOL EXTRA STRENGTH [Suspect]
     Active Substance: ACETAMINOPHEN
     Indication: BACK PAIN
     Dosage: EVERY 3 TO 4 HOURS
     Route: 065
     Dates: start: 20130315, end: 20130319
  7. TYLENOL [Suspect]
     Active Substance: ACETAMINOPHEN
     Indication: HEADACHE
     Dosage: 1 TO 2 DOSES PER INCIDENT. EVERY 3 TO 4 HOURS ALSO REPORTED AS FOUR OR FIVE PER HOUR.
     Route: 048
  8. TYLENOL [Suspect]
     Active Substance: ACETAMINOPHEN
     Indication: BACK PAIN
     Dosage: 1 TO 2 DOSES PER INCIDENT. EVERY 3 TO 4 HOURS ALSO REPORTED AS FOUR OR FIVE PER HOUR.
     Route: 048
  9. ACETAMINOPHEN. [Suspect]
     Active Substance: ACETAMINOPHEN
     Indication: BACK PAIN
     Dosage: 1 TO 2 DOSES PER INCIDENT
     Route: 065

REACTIONS (7)
  - Acute kidney injury [Recovering/Resolving]
  - Acute respiratory failure [Recovering/Resolving]
  - Toxicity to various agents [Recovering/Resolving]
  - Shock [Recovering/Resolving]
  - Hepatic failure [Recovering/Resolving]
  - Accidental overdose [Recovering/Resolving]
  - Disseminated intravascular coagulation [Recovering/Resolving]

NARRATIVE: CASE EVENT DATE: 201303
